FAERS Safety Report 4587369-2 (Version None)
Quarter: 2005Q1

REPORT INFORMATION
  Report Type: 
  Country: None (occurrence: None)
  Receive Date: 20050216
  Receipt Date: 20050203
  Transmission Date: 20050727
  Serious: Yes (Hospitalization)
  Sender: FDA-Public Use
  Company Number: US-JNJFOC-20050106147

PATIENT
  Sex: Female

DRUGS (10)
  1. INFLIXIMAB [Suspect]
     Indication: RHEUMATOID ARTHRITIS
     Route: 042
  2. METHYLPREDNISOLONE [Concomitant]
  3. ZOLOFT [Concomitant]
  4. LISINOPRIL [Concomitant]
  5. LORTAB [Concomitant]
  6. LORTAB [Concomitant]
     Dosage: AS NECESSARY
  7. AMBIEN [Concomitant]
     Dosage: NIGHTLY
  8. WELLBUTRIN [Concomitant]
  9. ZOFRAN [Concomitant]
  10. METHOTREXATE [Concomitant]

REACTIONS (3)
  - DEHYDRATION [None]
  - LUNG NEOPLASM MALIGNANT [None]
  - LUNG SQUAMOUS CELL CARCINOMA STAGE UNSPECIFIED [None]
